FAERS Safety Report 8621430-8 (Version None)
Quarter: 2012Q3

REPORT INFORMATION
  Report Type: 
  Country: None (occurrence: None)
  Receive Date: 20120824
  Receipt Date: 20120817
  Transmission Date: 20120928
  Serious: No
  Sender: FDA-Public Use
  Company Number: US-B.I. PHARMACEUTICALS,INC./RIDGEFIELD-2012-BP-19919BP

PATIENT
  Sex: Female

DRUGS (1)
  1. MOBIC [Suspect]

REACTIONS (4)
  - MALAISE [None]
  - DIZZINESS [None]
  - DIPLOPIA [None]
  - GASTROOESOPHAGEAL REFLUX DISEASE [None]
